FAERS Safety Report 25907330 (Version 3)
Quarter: 2025Q4

REPORT INFORMATION
  Report Type: Spontaneous
  Country: US (occurrence: US)
  Receive Date: 20251010
  Receipt Date: 20251125
  Transmission Date: 20260117
  Serious: Yes (Other)
  Sender: ALEXION PHARMACEUTICALS
  Company Number: US-AstraZeneca-CH-00967494AP

PATIENT
  Sex: Female

DRUGS (1)
  1. SYMBICORT [Suspect]
     Active Substance: BUDESONIDE\FORMOTEROL FUMARATE DIHYDRATE
     Indication: Pneumonia
     Dosage: 160 MICROGRAM, BID

REACTIONS (7)
  - Off label use [Unknown]
  - Pneumonia [Unknown]
  - Feeling abnormal [Unknown]
  - Illness [Unknown]
  - Product label confusion [Unknown]
  - Device malfunction [Unknown]
  - Product dose omission issue [Unknown]
